FAERS Safety Report 25490644 (Version 1)
Quarter: 2025Q2

REPORT INFORMATION
  Report Type: Spontaneous
  Country: US (occurrence: US)
  Receive Date: 20250628
  Receipt Date: 20250628
  Transmission Date: 20250717
  Serious: No
  Sender: ELI LILLY AND COMPANY
  Company Number: US-ELI_LILLY_AND_COMPANY-US202506020897

PATIENT
  Age: 47 Year
  Sex: Male

DRUGS (4)
  1. ZEPBOUND [Suspect]
     Active Substance: TIRZEPATIDE
     Indication: Weight control
     Dosage: 15 MG, DAILY
     Route: 065
     Dates: start: 20231229
  2. ZEPBOUND [Suspect]
     Active Substance: TIRZEPATIDE
     Indication: Weight control
     Dosage: 15 MG, DAILY
     Route: 065
     Dates: start: 20231229
  3. ZEPBOUND [Suspect]
     Active Substance: TIRZEPATIDE
     Indication: Weight control
     Dosage: 15 MG, DAILY
     Route: 065
     Dates: start: 20231229
  4. ZEPBOUND [Suspect]
     Active Substance: TIRZEPATIDE
     Indication: Weight control
     Dosage: 15 MG, DAILY
     Route: 065
     Dates: start: 20231229

REACTIONS (2)
  - Inappropriate schedule of product administration [Unknown]
  - Overdose [Unknown]
